FAERS Safety Report 4304668-X (Version None)
Quarter: 2004Q1

REPORT INFORMATION
  Report Type: 
  Country: None (occurrence: None)
  Receive Date: 20040225
  Receipt Date: 20040225
  Transmission Date: 20041129
  Serious: Yes (Life-Threatening, Hospitalization)
  Sender: FDA-Public Use
  Company Number: None

PATIENT
  Age: 69 Year
  Sex: Female
  Weight: 99.3 kg

DRUGS (3)
  1. TENECTEPLASE 50 MG GENENTECH [Suspect]
     Indication: MYOCARDIAL INFARCTION
     Dosage: 45 MG ONCE IV
     Route: 042
     Dates: start: 20030809, end: 20030809
  2. HEPARIN [Suspect]
     Indication: MYOCARDIAL INFARCTION
     Dosage: 6000 MG ONCE IV
     Route: 042
     Dates: start: 20030809, end: 20030809
  3. ASPIRIN [Concomitant]

REACTIONS (6)
  - ABDOMINAL PAIN [None]
  - GROIN PAIN [None]
  - HAEMOGLOBIN DECREASED [None]
  - HAEMORRHAGE [None]
  - RETROPERITONEAL HAEMATOMA [None]
  - TACHYCARDIA [None]
